FAERS Safety Report 12511132 (Version 4)
Quarter: 2017Q3

REPORT INFORMATION
  Report Type: Spontaneous
  Country: US (occurrence: US)
  Receive Date: 20160629
  Receipt Date: 20170712
  Transmission Date: 20171127
  Serious: Yes (Other)
  Sender: FDA-Public Use
  Company Number: US-TEVA-670913USA

PATIENT
  Age: 54 Year
  Sex: Female

DRUGS (7)
  1. NAPROSYN [Concomitant]
     Active Substance: NAPROXEN
  2. CLARITIN-D NOS [Concomitant]
     Active Substance: LORATADINE\PSEUDOEPHEDRINE SULFATE
  3. IMITREX [Concomitant]
     Active Substance: SUMATRIPTAN SUCCINATE
  4. ZECUITY [Suspect]
     Active Substance: SUMATRIPTAN SUCCINATE
     Indication: MIGRAINE
     Route: 062
  5. BOTOX [Concomitant]
     Active Substance: ONABOTULINUMTOXINA
  6. TREXINET [Concomitant]
  7. FLONASE [Concomitant]
     Active Substance: FLUTICASONE PROPIONATE

REACTIONS (13)
  - Application site burn [Recovered/Resolved]
  - Application site pain [Unknown]
  - Application site pruritus [Unknown]
  - Application site exfoliation [Recovering/Resolving]
  - Application site vesicles [Recovered/Resolved]
  - Application site scar [Unknown]
  - Wrong technique in product usage process [Unknown]
  - Product adhesion issue [Unknown]
  - Application site rash [Recovered/Resolved]
  - Application site scab [Unknown]
  - Application site erythema [Unknown]
  - Application site dryness [Unknown]
  - Hyperkeratosis [Recovering/Resolving]

NARRATIVE: CASE EVENT DATE: 201602
